FAERS Safety Report 23187965 (Version 2)
Quarter: 2024Q3

REPORT INFORMATION
  Report Type: Report from Study
  Country: TW (occurrence: TW)
  Receive Date: 20231115
  Receipt Date: 20240703
  Transmission Date: 20241017
  Serious: Yes (Hospitalization, Other)
  Sender: ALEXION PHARMACEUTICALS
  Company Number: TW-ALXN-A202307141

PATIENT
  Age: 59 Year
  Sex: Female
  Weight: 72 kg

DRUGS (1)
  1. SOLIRIS [Suspect]
     Active Substance: ECULIZUMAB
     Indication: Paroxysmal nocturnal haemoglobinuria
     Dosage: UNK, Q2W
     Route: 065

REACTIONS (1)
  - Rectal cancer [Recovered/Resolved with Sequelae]

NARRATIVE: CASE EVENT DATE: 20221109
